FAERS Safety Report 25158048 (Version 1)
Quarter: 2025Q2

REPORT INFORMATION
  Report Type: Spontaneous
  Country: CN (occurrence: CN)
  Receive Date: 20250404
  Receipt Date: 20250404
  Transmission Date: 20250717
  Serious: Yes (Other)
  Sender: STRIDES
  Company Number: None

PATIENT
  Sex: Female
  Weight: 2.23 kg

DRUGS (11)
  1. PREDNISONE [Suspect]
     Active Substance: PREDNISONE
     Indication: Immune thrombocytopenia
     Route: 064
  2. PREDNISONE [Suspect]
     Active Substance: PREDNISONE
     Route: 064
     Dates: start: 202307
  3. DEXAMETHASONE [Suspect]
     Active Substance: DEXAMETHASONE
     Indication: Immune thrombocytopenia
     Route: 064
  4. DEXAMETHASONE [Suspect]
     Active Substance: DEXAMETHASONE
     Route: 064
  5. DEXAMETHASONE [Suspect]
     Active Substance: DEXAMETHASONE
     Route: 064
  6. RECOMBINANT HUMAN THROMBOPOIETIN [Suspect]
     Active Substance: RECOMBINANT HUMAN THROMBOPOIETIN
     Indication: Immune thrombocytopenia
     Route: 064
  7. HUMAN IMMUNOGLOBULIN G [Suspect]
     Active Substance: HUMAN IMMUNOGLOBULIN G
     Indication: Immune thrombocytopenia
     Route: 064
     Dates: start: 202307
  8. RAFUTROMBOPAG [Suspect]
     Active Substance: RAFUTROMBOPAG
     Indication: Immune thrombocytopenia
     Route: 064
     Dates: start: 2023
  9. RAFUTROMBOPAG [Suspect]
     Active Substance: RAFUTROMBOPAG
     Route: 064
     Dates: start: 2023
  10. RAFUTROMBOPAG [Suspect]
     Active Substance: RAFUTROMBOPAG
     Route: 064
  11. OXYTOCIN [Suspect]
     Active Substance: OXYTOCIN
     Indication: Labour induction
     Route: 064
     Dates: start: 20240222

REACTIONS (2)
  - Low birth weight baby [Unknown]
  - Foetal exposure during pregnancy [Unknown]

NARRATIVE: CASE EVENT DATE: 20231001
